FAERS Safety Report 13209809 (Version 1)
Quarter: 2017Q1

REPORT INFORMATION
  Report Type: Report from Study
  Country: US (occurrence: US)
  Receive Date: 20170209
  Receipt Date: 20170209
  Transmission Date: 20170428
  Serious: No
  Sender: FDA-Public Use
  Company Number: GXBR2017US000473

PATIENT
  Age: 12 Year
  Sex: Male
  Weight: 26.5 kg

DRUGS (1)
  1. OMNITROPE [Suspect]
     Active Substance: SOMATROPIN
     Indication: HYPOPITUITARISM
     Dosage: 1.1 MG, QD
     Route: 058
     Dates: start: 20161231

REACTIONS (4)
  - Injection site bruising [Recovered/Resolved]
  - Crying [Recovered/Resolved]
  - Injection site pain [Recovered/Resolved]
  - Injection site haemorrhage [Recovered/Resolved]

NARRATIVE: CASE EVENT DATE: 20170104
